FAERS Safety Report 5251738-8 (Version None)
Quarter: 2007Q1

REPORT INFORMATION
  Report Type: 
  Country: None (occurrence: None)
  Receive Date: 20070228
  Receipt Date: 20061101
  Transmission Date: 20070707
  Serious: No
  Sender: FDA-Public Use
  Company Number: US-GLAXOSMITHKLINE-A0624570A

PATIENT
  Age: 49 Year
  Sex: Male

DRUGS (10)
  1. LAMICTAL [Suspect]
     Indication: BIPOLAR DISORDER
     Dosage: 50MG TWICE PER DAY
     Route: 048
     Dates: start: 20050101, end: 20061024
  2. TRISODONE [Concomitant]
  3. ZOLOFT [Concomitant]
  4. LISINOPRIL [Concomitant]
  5. MAGNESIUM OXIDE [Concomitant]
  6. METFORMIN HCL [Concomitant]
  7. POTASSIUM CHLORIDE [Concomitant]
  8. LIPITOR [Concomitant]
  9. PREVACID [Concomitant]
  10. MELATONIN [Concomitant]

REACTIONS (3)
  - ABDOMINAL PAIN UPPER [None]
  - MOOD SWINGS [None]
  - MOUTH ULCERATION [None]
